FAERS Safety Report 14567680 (Version 1)
Quarter: 2018Q1

REPORT INFORMATION
  Report Type: Spontaneous
  Country: US (occurrence: US)
  Receive Date: 20180223
  Receipt Date: 20180223
  Transmission Date: 20180509
  Serious: No
  Sender: FDA-Public Use
  Company Number: US-GLAXOSMITHKLINE-US2018025403

PATIENT
  Age: 82 Year
  Sex: Male

DRUGS (1)
  1. PREVACID 24 HR [Suspect]
     Active Substance: LANSOPRAZOLE
     Indication: GASTROOESOPHAGEAL REFLUX DISEASE
     Dosage: UNK

REACTIONS (6)
  - Myalgia [Unknown]
  - Pain in extremity [Unknown]
  - Neck pain [Unknown]
  - Adverse drug reaction [Unknown]
  - Arthralgia [Unknown]
  - Musculoskeletal pain [Unknown]
